FAERS Safety Report 5774007-6 (Version None)
Quarter: 2008Q2

REPORT INFORMATION
  Report Type: 
  Country: None (occurrence: None)
  Receive Date: 20080616
  Receipt Date: 20080611
  Transmission Date: 20081010
  Serious: Yes (Hospitalization, Other)
  Sender: FDA-Public Use
  Company Number: JP-AVENTIS-200811466JP

PATIENT
  Age: 30 Year
  Sex: Female

DRUGS (10)
  1. ALLEGRA [Suspect]
     Route: 048
     Dates: start: 20051122, end: 20051218
  2. MINOMYCIN [Suspect]
     Route: 048
     Dates: start: 20051122, end: 20051218
  3. LOXOMARIN [Suspect]
     Route: 048
     Dates: start: 20051212, end: 20051218
  4. MEIACT [Suspect]
     Route: 048
     Dates: start: 20051212, end: 20051218
  5. NARCOTINE [Concomitant]
     Dates: start: 20051212, end: 20051218
  6. METHYCOBAL                         /00056201/ [Concomitant]
     Dates: start: 20051212, end: 20051218
  7. SP TROCHE [Concomitant]
     Dates: start: 20051212, end: 20051218
  8. METHILEFT [Concomitant]
     Dates: start: 20051212, end: 20051218
  9. RINDERON                           /00008501/ [Concomitant]
     Dates: start: 20051122
  10. SAWATENE [Concomitant]
     Dates: start: 20051212, end: 20051218

REACTIONS (1)
  - STEVENS-JOHNSON SYNDROME [None]
